FAERS Safety Report 5134266-X (Version None)
Quarter: 2006Q4

REPORT INFORMATION
  Report Type: 
  Country: None (occurrence: None)
  Receive Date: 20061019
  Receipt Date: 20060802
  Transmission Date: 20070319
  Serious: Yes (Death)
  Sender: FDA-Public Use
  Company Number: 229549

PATIENT
  Age: 63 Year
  Sex: Female

DRUGS (6)
  1. MABTHERA (RITUXIMAB)CONC FOR SOLUTION FOR INFUSION [Suspect]
     Indication: LYMPHOMA
     Dosage: 250 MG/M2
     Dates: start: 20060330, end: 20060330
  2. ZEVALIN [Suspect]
     Indication: LYMPHOMA
     Dosage: 15 MBQ/KG, INTRAVENOUS
     Route: 042
     Dates: start: 20060330, end: 20060330
  3. YTRACIS (YTTRIUM-90) [Suspect]
     Indication: LYMPHOMA
     Dates: start: 20060330, end: 20060330
  4. ZEVALIN [Suspect]
     Indication: LYMPHOMA
     Dosage: -
  5. FORTECORTIN (DEXAMETHASONE) [Concomitant]
  6. AMPHO-MORONAL (AMPHOTERICIN B) [Concomitant]

REACTIONS (4)
  - NEUTROPHILIA [None]
  - PANCYTOPENIA [None]
  - PNEUMONIA [None]
  - SEPSIS [None]
